FAERS Safety Report 8024614-5 (Version None)
Quarter: 2011Q4

REPORT INFORMATION
  Report Type: 
  Country: None (occurrence: None)
  Receive Date: 20111130
  Receipt Date: 20110201
  Transmission Date: 20120403
  Serious: Yes (Other)
  Sender: FDA-Public Use
  Company Number: PHHY2011US01610

PATIENT
  Age: 65 Year
  Sex: Female

DRUGS (3)
  1. TEKTURNA [Suspect]
     Dosage: 150 MG (1 IN THE NIGHT),ORAL ; 150 MG ,ORAL
     Route: 048
     Dates: start: 20110101
  2. TEKTURNA HCT [Suspect]
     Dosage: 150 MG OF ALISK AND 12.5 MG (1 IN THE MORNING), ORAL ; ORAL
     Route: 048
     Dates: start: 20110101
  3. TOPROL-XL [Concomitant]

REACTIONS (5)
  - FEELING ABNORMAL [None]
  - HYPERTENSION [None]
  - NAUSEA [None]
  - BLOOD PRESSURE INADEQUATELY CONTROLLED [None]
  - DIZZINESS [None]
